FAERS Safety Report 8672293 (Version 3)
Quarter: 2013Q4

REPORT INFORMATION
  Report Type: Spontaneous
  Country: US (occurrence: US)
  Receive Date: 20120719
  Receipt Date: 20131101
  Transmission Date: 20140711
  Serious: No
  Sender: FDA-Public Use
  Company Number: US-009507513-2012SP024564

PATIENT
  Sex: Female

DRUGS (2)
  1. SAPHRIS [Suspect]
     Indication: PSYCHOTIC DISORDER
     Dosage: 5 MG, BID
     Route: 060
     Dates: start: 20120504
  2. ABILIFY [Concomitant]
     Dosage: UNK, QAM
     Route: 048
     Dates: start: 201107

REACTIONS (1)
  - Gait disturbance [Recovered/Resolved]
